FAERS Safety Report 15128876 (Version 2)
Quarter: 2024Q1

REPORT INFORMATION
  Report Type: Spontaneous
  Country: DE (occurrence: None)
  Receive Date: 20180711
  Receipt Date: 20240322
  Transmission Date: 20240409
  Serious: Yes (Life-Threatening, Hospitalization, Other)
  Sender: FDA-Public Use
  Company Number: 2018SE86331

PATIENT
  Age: 21 Year
  Sex: Female

DRUGS (10)
  1. SEROQUEL [Suspect]
     Active Substance: QUETIAPINE FUMARATE
     Indication: Product used for unknown indication
     Dosage: 2700.0MG UNKNOWN
     Route: 048
     Dates: start: 20110608
  2. AMOXICILLIN TRIHYDRATE [Suspect]
     Active Substance: AMOXICILLIN
     Indication: Product used for unknown indication
     Dosage: 200 MG, TOTAL20000.0MG UNKNOWN
  3. LITHIUM [Suspect]
     Active Substance: LITHIUM
     Indication: Product used for unknown indication
     Dosage: 9000 MG, TOTAL9000.0MG UNKNOWN
     Dates: start: 20110608
  4. FLUOXETINE [Suspect]
     Active Substance: FLUOXETINE HYDROCHLORIDE
     Indication: Product used for unknown indication
     Dosage: 760 MG, TOTAL760.0MG UNKNOWN
  5. VALPROATE [Suspect]
     Active Substance: VALPROIC ACID
     Indication: Product used for unknown indication
     Dosage: 5000 MG, TOTAL5000.0MG UNKNOWN
     Dates: start: 20110608
  6. LAMICTAL [Suspect]
     Active Substance: LAMOTRIGINE
     Indication: Product used for unknown indication
     Dosage: 1900 MG, TOTAL
  7. FLUOXETINE [Suspect]
     Active Substance: FLUOXETINE HYDROCHLORIDE
     Dosage: 1DF=20-30 TABLETS.FLUOXETIN 40
  8. ABILIFY [Suspect]
     Active Substance: ARIPIPRAZOLE
     Indication: Product used for unknown indication
     Dosage: 2700MG, TOTAL2700.0MG UNKNOWN
     Dates: start: 20110117, end: 20110716
  9. ALCOHOL [Suspect]
     Active Substance: ALCOHOL
     Indication: Product used for unknown indication
     Dosage: UNK
  10. LEVOMEPROMAZINE [Suspect]
     Active Substance: LEVOMEPROMAZINE
     Indication: Product used for unknown indication
     Dosage: 9 TABS100.0MG UNKNOWN
     Route: 048
     Dates: start: 20110608

REACTIONS (10)
  - Overdose [Unknown]
  - Intentional overdose [Recovered/Resolved]
  - Suicide attempt [Unknown]
  - Sopor [Unknown]
  - Depressed level of consciousness [Recovered/Resolved]
  - Seizure [Recovered/Resolved]
  - Vomiting [Recovered/Resolved]
  - Hypotension [Unknown]
  - Tachycardia [Unknown]
  - Somnolence [Unknown]

NARRATIVE: CASE EVENT DATE: 20110608
